FAERS Safety Report 5613608-2 (Version None)
Quarter: 2008Q1

REPORT INFORMATION
  Report Type: 
  Country: None (occurrence: None)
  Receive Date: 20080205
  Receipt Date: 20080129
  Transmission Date: 20080703
  Serious: Yes (Other)
  Sender: FDA-Public Use
  Company Number: PHEH2008US01273

PATIENT
  Sex: Female

DRUGS (1)
  1. ZOMETA [Suspect]
     Indication: RESORPTION BONE INCREASED

REACTIONS (5)
  - ANXIETY [None]
  - GENERAL PHYSICAL CONDITION ABNORMAL [None]
  - INJURY [None]
  - OSTEONECROSIS [None]
  - PAIN [None]
